FAERS Safety Report 6584547-8 (Version None)
Quarter: 2010Q1

REPORT INFORMATION
  Report Type: 
  Country: None (occurrence: None)
  Receive Date: 20100217
  Receipt Date: 20100211
  Transmission Date: 20100710
  Serious: Yes (Other)
  Sender: FDA-Public Use
  Company Number: US-RB-002705-10

PATIENT
  Age: 39 Year
  Sex: Female

DRUGS (2)
  1. MUCINEX DM [Suspect]
     Dosage: TOOK 1 TABLET
     Route: 048
     Dates: start: 20100210
  2. VITAMIN C [Concomitant]

REACTIONS (9)
  - ASTHENIA [None]
  - CHILLS [None]
  - DIARRHOEA [None]
  - HYPERHIDROSIS [None]
  - LOSS OF CONSCIOUSNESS [None]
  - MALAISE [None]
  - NAUSEA [None]
  - PALLOR [None]
  - VOMITING [None]
